FAERS Safety Report 19867919 (Version 1)
Quarter: 2021Q3

REPORT INFORMATION
  Report Type: Other
  Country: TW (occurrence: TW)
  Receive Date: 20210922
  Receipt Date: 20210922
  Transmission Date: 20211014
  Serious: Yes (Other)
  Sender: FDA-Public Use
  Company Number: TW-ROCHE-2916603

PATIENT
  Age: 68 Year
  Sex: Male

DRUGS (1)
  1. LUCENTIS [Suspect]
     Active Substance: RANIBIZUMAB
     Indication: DIABETIC RETINAL OEDEMA
     Dosage: 0.5 MG
     Route: 047
     Dates: start: 2020

REACTIONS (3)
  - Visual acuity reduced [Unknown]
  - Glycosylated haemoglobin increased [Unknown]
  - Optical coherence tomography abnormal [Unknown]

NARRATIVE: CASE EVENT DATE: 20210621
